FAERS Safety Report 13258041 (Version 1)
Quarter: 2017Q1

REPORT INFORMATION
  Report Type: Spontaneous
  Country: US (occurrence: US)
  Receive Date: 20170221
  Receipt Date: 20170221
  Transmission Date: 20170428
  Serious: No
  Sender: FDA-Public Use
  Company Number: US-BAUSCH-BL-2016-030196

PATIENT
  Age: 47 Year
  Sex: Female
  Weight: 57.2 kg

DRUGS (1)
  1. ADDYI [Suspect]
     Active Substance: FLIBANSERIN
     Indication: LIBIDO DECREASED
     Dosage: AT NIGHT
     Route: 048
     Dates: start: 2016

REACTIONS (3)
  - Dizziness [Recovered/Resolved]
  - Hypotension [Unknown]
  - Drug intolerance [Unknown]

NARRATIVE: CASE EVENT DATE: 201612
